FAERS Safety Report 12473084 (Version 1)
Quarter: 2016Q2

REPORT INFORMATION
  Report Type: Report from Study
  Country: BR (occurrence: BR)
  Receive Date: 20160616
  Receipt Date: 20160616
  Transmission Date: 20160815
  Serious: Yes (Other)
  Sender: FDA-Public Use
  Company Number: PHHY2016BR082193

PATIENT
  Sex: Female

DRUGS (1)
  1. ACLASTA [Suspect]
     Active Substance: ZOLEDRONIC ACID
     Indication: OSTEOPOROSIS
     Dosage: 5 MG, Q12MO
     Route: 042

REACTIONS (9)
  - Fall [Unknown]
  - Panic disorder [Unknown]
  - Body height decreased [Unknown]
  - Head discomfort [Unknown]
  - Femur fracture [Unknown]
  - Depression [Unknown]
  - Nervousness [Unknown]
  - Humerus fracture [Unknown]
  - Memory impairment [Unknown]
